FAERS Safety Report 4560949-6 (Version None)
Quarter: 2005Q1

REPORT INFORMATION
  Report Type: 
  Country: None (occurrence: None)
  Receive Date: 20050126
  Receipt Date: 20040304
  Transmission Date: 20050727
  Serious: No
  Sender: FDA-Public Use
  Company Number: US-BRISTOL-MYERS SQUIBB COMPANY-12524344

PATIENT
  Age: 63 Year
  Sex: Female
  Weight: 96 kg

DRUGS (5)
  1. GLUCOPHAGE [Suspect]
     Indication: DIABETES MELLITUS
     Dosage: STARTED 18JAN2000 AT 500MG QD 15FEB2000 500MG BID SEP2000 500MG TID 23JUN2001 850MG TID
     Route: 048
     Dates: start: 20000118
  2. PRAVACHOL [Concomitant]
  3. DIOVAN [Concomitant]
  4. ASPIRIN [Concomitant]
  5. MULTIVITAMIN [Concomitant]

REACTIONS (1)
  - DIARRHOEA [None]
